FAERS Safety Report 17101514 (Version 2)
Quarter: 2019Q4

REPORT INFORMATION
  Report Type: Spontaneous
  Country: NZ (occurrence: NZ)
  Receive Date: 20191202
  Receipt Date: 20191205
  Transmission Date: 20200122
  Serious: Yes (Other)
  Sender: FDA-Public Use
  Company Number: NZ-GILEAD-2019-0440130

PATIENT
  Sex: Female

DRUGS (1)
  1. HARVONI [Suspect]
     Active Substance: LEDIPASVIR\SOFOSBUVIR
     Indication: HEPATITIS C
     Route: 065

REACTIONS (5)
  - Endotracheal intubation [Not Recovered/Not Resolved]
  - Dysphagia [Not Recovered/Not Resolved]
  - Feeding tube user [Not Recovered/Not Resolved]
  - Product use complaint [Not Recovered/Not Resolved]
  - Circumstance or information capable of leading to medication error [Unknown]
